FAERS Safety Report 6871826-X (Version None)
Quarter: 2010Q3

REPORT INFORMATION
  Report Type: 
  Country: None (occurrence: None)
  Receive Date: 20100723
  Receipt Date: 20100716
  Transmission Date: 20110219
  Serious: Yes (Other)
  Sender: FDA-Public Use
  Company Number: B0666853A

PATIENT
  Sex: Male

DRUGS (2)
  1. ORAXIM [Suspect]
     Dosage: 500MG TWICE PER DAY
     Route: 065
     Dates: start: 20100206, end: 20100207
  2. CORTISONE [Concomitant]
     Route: 065

REACTIONS (2)
  - ACUTE RESPIRATORY FAILURE [None]
  - PRURITUS [None]
